FAERS Safety Report 21555640 (Version 1)
Quarter: 2022Q4

REPORT INFORMATION
  Report Type: Spontaneous
  Country: FR (occurrence: FR)
  Receive Date: 20221104
  Receipt Date: 20221104
  Transmission Date: 20230113
  Serious: Yes (Hospitalization)
  Sender: FDA-Public Use
  Company Number: None

PATIENT
  Age: 22 Year
  Sex: Female
  Weight: 87 kg

DRUGS (2)
  1. AMOXICILLIN [Suspect]
     Active Substance: AMOXICILLIN
     Indication: Tooth infection
     Dosage: UNIT DOSE : 1 GRAM   , FREQUENCY TIME :  1 TOTAL  , DURATION :  1 DAY
     Dates: start: 20220418, end: 20220418
  2. ACETAMINOPHEN\CAFFEINE [Suspect]
     Active Substance: ACETAMINOPHEN\CAFFEINE
     Indication: Toothache
     Dosage: UNIT DOSE : 2 DF  , FREQUENCY TIME : 1 DAY   , DURATION :  1 DAY
     Dates: start: 20220411, end: 20220412

REACTIONS (1)
  - Hepatocellular injury [Recovering/Resolving]

NARRATIVE: CASE EVENT DATE: 20220419
